FAERS Safety Report 6651803-4 (Version None)
Quarter: 2010Q1

REPORT INFORMATION
  Report Type: 
  Country: None (occurrence: None)
  Receive Date: 20100325
  Receipt Date: 20100310
  Transmission Date: 20100710
  Serious: Yes (Death, Life-Threatening)
  Sender: FDA-Public Use
  Company Number: DE-GENENTECH-298723

PATIENT
  Sex: Female
  Weight: 50 kg

DRUGS (6)
  1. RITUXIMAB [Suspect]
     Indication: EPSTEIN-BARR VIRUS ASSOCIATED LYMPHOPROLIFERATIVE DISORDER
     Dosage: 375 MG/M2, 1/WEEK
     Route: 042
     Dates: start: 20100119, end: 20100203
  2. RITUXIMAB [Suspect]
     Indication: HISTIOCYTOSIS HAEMATOPHAGIC
  3. CYCLOSPORINE [Suspect]
     Indication: EPSTEIN-BARR VIRUS ASSOCIATED LYMPHOPROLIFERATIVE DISORDER
     Dosage: 2 MG/KG, Q21D
     Route: 042
     Dates: start: 20100119, end: 20100203
  4. CYCLOSPORINE [Suspect]
     Indication: HISTIOCYTOSIS HAEMATOPHAGIC
  5. DEXAMETHASONE [Concomitant]
     Indication: HISTIOCYTOSIS HAEMATOPHAGIC
     Dosage: 10 MG/KG, UNK
     Route: 042
     Dates: start: 20100119
  6. ETOPOSIDE [Concomitant]
     Indication: HISTIOCYTOSIS HAEMATOPHAGIC
     Dosage: 75 MG/M2, UNK
     Route: 042
     Dates: end: 20100212

REACTIONS (1)
  - LEUKOENCEPHALOPATHY [None]
